FAERS Safety Report 14587200 (Version 1)
Quarter: 2018Q1

REPORT INFORMATION
  Report Type: Spontaneous
  Country: US (occurrence: US)
  Receive Date: 20180228
  Receipt Date: 20180228
  Transmission Date: 20180509
  Serious: No
  Sender: FDA-Public Use
  Company Number: None

PATIENT
  Age: 53 Year
  Sex: Female
  Weight: 62.7 kg

DRUGS (1)
  1. VERZENIO [Suspect]
     Active Substance: ABEMACICLIB
     Indication: CHEMOTHERAPY
     Route: 048
     Dates: start: 20171122

REACTIONS (3)
  - Drug dose omission [None]
  - Vomiting [None]
  - Liver disorder [None]

NARRATIVE: CASE EVENT DATE: 20171201
